FAERS Safety Report 14240077 (Version 1)
Quarter: 2017Q4

REPORT INFORMATION
  Report Type: Spontaneous
  Country: US (occurrence: US)
  Receive Date: 20171128
  Receipt Date: 20171128
  Transmission Date: 20180321
  Serious: No
  Sender: FDA-Public Use
  Company Number: None

PATIENT
  Age: 83 Year
  Sex: Female
  Weight: 80.1 kg

DRUGS (16)
  1. TRAZODONE [Suspect]
     Active Substance: TRAZODONE HYDROCHLORIDE
     Indication: INSOMNIA
     Dosage: ?          QUANTITY:90 TABLET(S);?
     Route: 048
  2. FUROSEMIDE. [Concomitant]
     Active Substance: FUROSEMIDE
  3. HYDROCODONE/ACETAMINOPHEN [Concomitant]
     Active Substance: ACETAMINOPHEN\HYDROCODONE
  4. BENAZEPRIL [Concomitant]
     Active Substance: BENAZEPRIL HYDROCHLORIDE
  5. MELATONIN [Concomitant]
     Active Substance: MELATONIN
  6. K-DUR [Concomitant]
     Active Substance: POTASSIUM CHLORIDE
  7. ALLIPURINOL [Concomitant]
  8. SPIRONOLACTONE. [Concomitant]
     Active Substance: SPIRONOLACTONE
  9. VITAMIN D3 [Concomitant]
     Active Substance: CHOLECALCIFEROL
  10. GAS-XL [Concomitant]
  11. MILK OF MAGNESIA [Concomitant]
     Active Substance: MAGNESIUM HYDROXIDE
  12. VENLAFAXIN [Suspect]
     Active Substance: VENLAFAXINE HYDROCHLORIDE
     Indication: DEPRESSION
     Route: 048
  13. CARVEDILOL. [Concomitant]
     Active Substance: CARVEDILOL
  14. ACETAMINOPHEN. [Concomitant]
     Active Substance: ACETAMINOPHEN
  15. LEVO-THYROXINE [Concomitant]
     Active Substance: LEVOTHYROXINE
  16. MULTI-VITAMIN B-COMPLEX WITH B-12 [Concomitant]

REACTIONS (19)
  - Feeling abnormal [None]
  - Fibromyalgia [None]
  - Nausea [None]
  - Vision blurred [None]
  - Hyperhidrosis [None]
  - Anxiety [None]
  - Insomnia [None]
  - Myalgia [None]
  - Arthritis [None]
  - Contraindicated drug prescribed [None]
  - Arthralgia [None]
  - Dry eye [None]
  - Malaise [None]
  - Intentional product use issue [None]
  - Contraindicated product administered [None]
  - Headache [None]
  - Heart rate irregular [None]
  - Drug tolerance decreased [None]
  - Balance disorder [None]
